FAERS Safety Report 4715234-6 (Version None)
Quarter: 2005Q2

REPORT INFORMATION
  Report Type: 
  Country: None (occurrence: None)
  Receive Date: 20050630
  Receipt Date: 20050518
  Transmission Date: 20051028
  Serious: No
  Sender: FDA-Public Use
  Company Number: 214589

PATIENT
  Age: 48 Year
  Sex: Female
  Weight: 73.9 kg

DRUGS (4)
  1. AVASTIN [Suspect]
     Indication: COLON CANCER
     Dosage: 370 MG, Q2W, INTRAVENOUS
     Route: 042
     Dates: start: 20050502
  2. OXALIPLATIN [Concomitant]
  3. FLUOROURACIL [Concomitant]
  4. LEUCOVORIN CALCIUM [Concomitant]

REACTIONS (2)
  - DYSGEUSIA [None]
  - RETCHING [None]
